FAERS Safety Report 16367765 (Version 2)
Quarter: 2019Q2

REPORT INFORMATION
  Report Type: Report from Study
  Country: AU (occurrence: AU)
  Receive Date: 20190529
  Receipt Date: 20190607
  Transmission Date: 20190711
  Serious: Yes (Other)
  Sender: FDA-Public Use
  Company Number: AU-REGENERON PHARMACEUTICALS, INC.-2019-32855

PATIENT

DRUGS (2)
  1. OCULAR LUBRICANT [HYPROMELLOSE] [Concomitant]
     Indication: PRODUCT USED FOR UNKNOWN INDICATION
     Dosage: UNK
  2. EYLEA [Suspect]
     Active Substance: AFLIBERCEPT
     Indication: NEOVASCULAR AGE-RELATED MACULAR DEGENERATION
     Dosage: BOTH EYES, UNKNOWN DOSE, FREQUENCY AND TOTAL NUMBER OF INJECTIONS
     Route: 031
     Dates: start: 20181220

REACTIONS (3)
  - Asthenopia [Not Recovered/Not Resolved]
  - Eye haemorrhage [Recovered/Resolved]
  - Pre-existing condition improved [Unknown]
